FAERS Safety Report 4923890-2 (Version None)
Quarter: 2006Q1

REPORT INFORMATION
  Report Type: 
  Country: None (occurrence: None)
  Receive Date: 20060224
  Receipt Date: 20060224
  Transmission Date: 20060701
  Serious: Yes (Death)
  Sender: FDA-Public Use
  Company Number: None

PATIENT
  Age: 67 Year
  Sex: Male

DRUGS (3)
  1. GEMZAR [Suspect]
     Indication: PANCREATIC CARCINOMA
     Dosage: 1275 MG WEEKLY IV
     Route: 042
     Dates: start: 20041210, end: 20060208
  2. TAXOTERE [Suspect]
     Indication: PANCREATIC CARCINOMA
     Dosage: WEEKLY IV
     Route: 042
     Dates: start: 20041210, end: 20060208
  3. XELODA [Suspect]
     Dosage: DAILY PO
     Route: 048
     Dates: start: 20041208, end: 20060208

REACTIONS (1)
  - DEATH [None]
